FAERS Safety Report 10558270 (Version 1)
Quarter: 2014Q4

REPORT INFORMATION
  Report Type: Spontaneous
  Country: GB (occurrence: GB)
  Receive Date: 20141031
  Receipt Date: 20141031
  Transmission Date: 20150529
  Serious: Yes (Other)
  Sender: FDA-Public Use
  Company Number: GB-TEVA-517340ISR

PATIENT
  Sex: Female

DRUGS (1)
  1. AMITRIPTYLINE [Suspect]
     Active Substance: AMITRIPTYLINE
     Indication: CYSTITIS INTERSTITIAL
     Dosage: AT NIGHT

REACTIONS (10)
  - Fluid retention [Unknown]
  - Mydriasis [Unknown]
  - Aggression [Unknown]
  - Alcohol interaction [Unknown]
  - Breast swelling [Unknown]
  - Dry mouth [Unknown]
  - Insomnia [Unknown]
  - Confusional state [Unknown]
  - Agitation [Unknown]
  - Vision blurred [Unknown]
